FAERS Safety Report 10434693 (Version 1)
Quarter: 2014Q3

REPORT INFORMATION
  Report Type: Spontaneous
  Country: US (occurrence: None)
  Receive Date: 20140815
  Receipt Date: 20140815
  Transmission Date: 20150326
  Serious: No
  Sender: FDA-Public Use
  Company Number: 2014TUS004069

PATIENT
  Age: 30 Year
  Sex: Female
  Weight: 124 kg

DRUGS (4)
  1. BRINTELLIX [Suspect]
     Active Substance: VORTIOXETINE HYDROBROMIDE
     Indication: GENERALISED ANXIETY DISORDER
     Route: 048
     Dates: start: 20140224, end: 20140411
  2. LAMICTAL [Concomitant]
     Active Substance: LAMOTRIGINE
  3. BRINTELLIX [Suspect]
     Active Substance: VORTIOXETINE HYDROBROMIDE
     Indication: AFFECTIVE DISORDER
     Route: 048
     Dates: start: 20140224, end: 20140411
  4. BRINTELLIX [Suspect]
     Active Substance: VORTIOXETINE HYDROBROMIDE
     Indication: MAJOR DEPRESSION
     Route: 048
     Dates: start: 20140224, end: 20140411

REACTIONS (2)
  - Drug ineffective [None]
  - Sedation [None]

NARRATIVE: CASE EVENT DATE: 20140224
